FAERS Safety Report 12948138 (Version 1)
Quarter: 2016Q4

REPORT INFORMATION
  Report Type: Report from Study
  Country: US (occurrence: US)
  Receive Date: 20161116
  Receipt Date: 20161116
  Transmission Date: 20170207
  Serious: Yes (Hospitalization, Other)
  Sender: FDA-Public Use
  Company Number: US-ELI_LILLY_AND_COMPANY-US201606002463

PATIENT
  Age: 50 Year
  Sex: Female

DRUGS (4)
  1. FORTEO [Suspect]
     Active Substance: TERIPARATIDE
     Dosage: 20 UG, QD
     Route: 058
  2. ATIVAN [Concomitant]
     Active Substance: LORAZEPAM
     Indication: ANXIETY
  3. FORTEO [Suspect]
     Active Substance: TERIPARATIDE
     Dosage: 20 UG, QD
     Route: 058
     Dates: end: 20160912
  4. FORTEO [Suspect]
     Active Substance: TERIPARATIDE
     Indication: OSTEOPOROSIS
     Dosage: 20 UG, UNKNOWN
     Route: 058
     Dates: start: 20160525

REACTIONS (16)
  - White blood cell count increased [Recovering/Resolving]
  - Septic shock [Unknown]
  - Flatulence [Unknown]
  - Dyspnoea [Recovered/Resolved]
  - Soliloquy [Unknown]
  - Femur fracture [Recovering/Resolving]
  - Diarrhoea [Unknown]
  - Cerebrovascular accident [Unknown]
  - Coma [Recovered/Resolved]
  - Renal failure [Recovering/Resolving]
  - Fall [Unknown]
  - Muscle spasms [Unknown]
  - Blood glucose decreased [Unknown]
  - Pain in extremity [Recovering/Resolving]
  - Muscular weakness [Recovering/Resolving]
  - Incoherent [Unknown]

NARRATIVE: CASE EVENT DATE: 20160526
